FAERS Safety Report 18327040 (Version 2)
Quarter: 2020Q4

REPORT INFORMATION
  Report Type: Spontaneous
  Country: FR (occurrence: FR)
  Receive Date: 20200929
  Receipt Date: 20201007
  Transmission Date: 20210113
  Serious: Yes (Hospitalization)
  Sender: FDA-Public Use
  Company Number: FR-EMD SERONO-E2B_90080454

PATIENT
  Age: 27 Year
  Sex: Female

DRUGS (3)
  1. DECAPEPTYL                         /00486501/ [Suspect]
     Active Substance: GONADORELIN
     Indication: OVULATION INDUCTION
     Route: 058
     Dates: start: 202008, end: 202008
  2. OVITRELLE [Suspect]
     Active Substance: CHORIOGONADOTROPIN ALFA
     Indication: OVULATION INDUCTION
     Route: 058
     Dates: start: 20200819
  3. BEMFOLA [Suspect]
     Active Substance: FOLLITROPIN
     Indication: OVULATION INDUCTION
     Route: 058
     Dates: start: 202008, end: 202008

REACTIONS (5)
  - Liver disorder [Recovering/Resolving]
  - Diarrhoea [Recovered/Resolved]
  - Ascites [Recovering/Resolving]
  - Ovarian hyperstimulation syndrome [Recovered/Resolved]
  - Haematocrit increased [Recovered/Resolved]

NARRATIVE: CASE EVENT DATE: 20200823
